FAERS Safety Report 4334813-1 (Version None)
Quarter: 2004Q2

REPORT INFORMATION
  Report Type: 
  Country: None (occurrence: None)
  Receive Date: 20040408
  Receipt Date: 20040329
  Transmission Date: 20050107
  Serious: Yes (Hospitalization)
  Sender: FDA-Public Use
  Company Number: GB-BRISTOL-MYERS SQUIBB COMPANY-12543914

PATIENT
  Age: 62 Year
  Sex: Male
  Weight: 55 kg

DRUGS (9)
  1. CISPLATIN [Suspect]
     Indication: GASTRIC CANCER
     Route: 042
     Dates: start: 20031001, end: 20031001
  2. EPIRUBICIN [Suspect]
     Indication: GASTRIC CANCER
     Route: 042
     Dates: start: 20031001, end: 20031001
  3. CAPECITABINE [Suspect]
     Indication: GASTRIC CANCER
     Route: 048
     Dates: start: 20031001, end: 20031015
  4. CO-PROXAMOL [Concomitant]
     Indication: PAIN
     Route: 048
  5. DOMPERIDONE [Concomitant]
     Indication: POST PROCEDURAL NAUSEA
     Route: 048
  6. OXYCONTIN [Concomitant]
     Indication: PAIN
     Route: 048
  7. DULCOLAX [Concomitant]
     Indication: CONSTIPATION
     Route: 048
  8. ZOPICLONE [Concomitant]
     Indication: SEDATION
     Route: 048
  9. DEXAMETHASONE [Concomitant]
     Route: 048

REACTIONS (1)
  - NEUTROPENIC SEPSIS [None]
